FAERS Safety Report 9896872 (Version 1)
Quarter: 2014Q1

REPORT INFORMATION
  Report Type: Spontaneous
  Country: US (occurrence: US)
  Receive Date: 20140214
  Receipt Date: 20140214
  Transmission Date: 20141002
  Serious: Yes (Other)
  Sender: FDA-Public Use
  Company Number: US-PFIZER INC-2014042709

PATIENT
  Age: 63 Year
  Sex: Female
  Weight: 65.76 kg

DRUGS (4)
  1. LYRICA [Suspect]
     Indication: FIBROMYALGIA
     Dosage: 200 MG, 2X/DAY
     Dates: end: 201401
  2. LYRICA [Suspect]
     Dosage: 200 MG, 2X/DAY
     Dates: start: 201402
  3. VERAPAMIL [Concomitant]
     Indication: HYPERTENSION
     Dosage: 240 MG, 1X/DAY
  4. LISINOPRIL [Concomitant]
     Indication: HYPERTENSION
     Dosage: 10 MG, 2X/DAY

REACTIONS (6)
  - Drug withdrawal syndrome [Recovered/Resolved]
  - Hallucination [Recovered/Resolved]
  - Panic attack [Recovered/Resolved]
  - Fear [Recovered/Resolved]
  - Balance disorder [Unknown]
  - Fall [Unknown]
